FAERS Safety Report 24236122 (Version 1)
Quarter: 2024Q3

REPORT INFORMATION
  Report Type: Spontaneous
  Country: US (occurrence: US)
  Receive Date: 20240822
  Receipt Date: 20240822
  Transmission Date: 20241016
  Serious: No
  Sender: AMGEN
  Company Number: US-AMGEN-USASP2024165761

PATIENT
  Sex: Male

DRUGS (6)
  1. RAVICTI [Suspect]
     Active Substance: GLYCEROL PHENYLBUTYRATE
     Indication: Urea cycle disorder
     Dosage: 2 MILLILITER, TID (2.2 G)
     Route: 048
  2. SKYTROFA [Concomitant]
     Active Substance: LONAPEGSOMATROPIN-TCGD
     Dosage: 11 MILLIGRAM, (CARTRIDGE)
     Route: 065
  3. NORDITROPIN [Concomitant]
     Active Substance: SOMATROPIN
     Dosage: UNK
     Route: 065
  4. FOLIC ACID [Concomitant]
     Active Substance: FOLIC ACID
     Dosage: 1 MILLIGRAM
     Route: 065
  5. VITAMIN D2 [Concomitant]
     Active Substance: ERGOCALCIFEROL
     Dosage: 1250 MICROGRAM
     Route: 065
  6. Optimal [Concomitant]
     Dosage: 1250 MICROGRAM
     Route: 065

REACTIONS (1)
  - Infective glossitis [Unknown]
